FAERS Safety Report 19749673 (Version 1)
Quarter: 2021Q3

REPORT INFORMATION
  Report Type: Spontaneous
  Country: US (occurrence: US)
  Receive Date: 20210826
  Receipt Date: 20210826
  Transmission Date: 20211014
  Serious: No
  Sender: FDA-Public Use
  Company Number: US-BAYER-2021-182093

PATIENT
  Age: 60 Year
  Sex: Female

DRUGS (1)
  1. VITRAKVI [Suspect]
     Active Substance: LAROTRECTINIB
     Indication: BRAIN NEOPLASM
     Dosage: 100 MG, BID

REACTIONS (1)
  - Dizziness [Recovering/Resolving]
